FAERS Safety Report 20512330 (Version 1)
Quarter: 2022Q1

REPORT INFORMATION
  Report Type: Spontaneous
  Country: US (occurrence: None)
  Receive Date: 20220223
  Receipt Date: 20220223
  Transmission Date: 20220424
  Serious: No
  Sender: FDA-Public Use
  Company Number: None

PATIENT
  Sex: Male

DRUGS (4)
  1. VIGABATRIN [Suspect]
     Active Substance: VIGABATRIN
     Indication: Tuberous sclerosis complex
     Dosage: FREQUENCY : TWICE A DAY;?
     Route: 048
  2. VITAMINS [Concomitant]
     Active Substance: VITAMINS
  3. MELATONIN [Concomitant]
     Active Substance: MELATONIN
  4. EVEROLIMUS [Concomitant]
     Active Substance: EVEROLIMUS

REACTIONS (2)
  - Gastroenteritis viral [None]
  - Therapy interrupted [None]
